FAERS Safety Report 6292691-8 (Version None)
Quarter: 2009Q3

REPORT INFORMATION
  Report Type: 
  Country: None (occurrence: None)
  Receive Date: 20090731
  Receipt Date: 20090722
  Transmission Date: 20100115
  Serious: Yes (Hospitalization)
  Sender: FDA-Public Use
  Company Number: A0695672A

PATIENT
  Age: 74 Year
  Sex: Female
  Weight: 66.8 kg

DRUGS (7)
  1. AVANDIA [Suspect]
     Dosage: 4MG TWICE PER DAY
     Route: 048
     Dates: start: 20030301, end: 20070501
  2. STARLIX [Concomitant]
     Dates: start: 20030901, end: 20080530
  3. ACTOS [Concomitant]
     Dates: start: 20030524, end: 20080530
  4. LISINOPRIL [Concomitant]
  5. SYNTHROID [Concomitant]
  6. LIPITOR [Concomitant]
  7. METOPROLOL TARTRATE [Concomitant]

REACTIONS (5)
  - ANXIETY [None]
  - CORONARY ARTERY DISEASE [None]
  - INJURY [None]
  - MYOCARDIAL INFARCTION [None]
  - PAIN [None]
